FAERS Safety Report 25867620 (Version 3)
Quarter: 2025Q4

REPORT INFORMATION
  Report Type: Spontaneous
  Country: CN (occurrence: CN)
  Receive Date: 20251001
  Receipt Date: 20251009
  Transmission Date: 20260119
  Serious: Yes (Life-Threatening, Hospitalization, Other)
  Sender: BAUSCH AND LOMB
  Company Number: CN-BAUSCH-BH-2025-017972

PATIENT
  Sex: Female

DRUGS (3)
  1. METFORMIN [Suspect]
     Active Substance: METFORMIN HYDROCHLORIDE
     Indication: Product used for unknown indication
     Route: 065
  2. ENALAPRIL [Suspect]
     Active Substance: ENALAPRIL
     Indication: Product used for unknown indication
     Dosage: 30 TABLETS/15 G
     Route: 065
  3. RESERPINE [Suspect]
     Active Substance: RESERPINE
     Indication: Product used for unknown indication
     Route: 065

REACTIONS (16)
  - Toxic encephalopathy [Recovered/Resolved]
  - Hypoxic-ischaemic encephalopathy [Recovered/Resolved]
  - Shock [Recovered/Resolved]
  - Disseminated intravascular coagulation [Recovered/Resolved]
  - Pulmonary oedema [Recovered/Resolved]
  - Hypothermia [Recovered/Resolved]
  - Intentional overdose [Unknown]
  - Multiple organ dysfunction syndrome [Recovered/Resolved]
  - Hypoglycaemia [Recovered/Resolved]
  - Metabolic acidosis [Recovered/Resolved]
  - Hyperlactacidaemia [Recovered/Resolved]
  - Toxicity to various agents [Recovered/Resolved]
  - Ileus paralytic [Recovered/Resolved]
  - Capillary leak syndrome [Recovered/Resolved]
  - Abdominal compartment syndrome [Recovered/Resolved]
  - Myocardial injury [Recovered/Resolved]

NARRATIVE: CASE EVENT DATE: 20220101
